FAERS Safety Report 8800445 (Version 1)
Quarter: 2012Q4

REPORT INFORMATION
  Report Type: 
  Country: US (occurrence: US)
  Receive Date: 20120921
  Receipt Date: 20120921
  Transmission Date: 20130627
  Serious: Yes (Life-Threatening, Hospitalization, Other)
  Sender: FDA-Public Use
  Company Number: US-009507513-1206USA03275

PATIENT
  Age: 54 Year
  Sex: Female
  Weight: 80.74 kg

DRUGS (16)
  1. ZOLINZA [Suspect]
     Indication: MYCOSIS FUNGOIDES
     Dosage: 400 mg, UNK
     Route: 048
     Dates: start: 20111214, end: 20120105
  2. ANTINEOPLASTIC (UNSPECIFIED) [Concomitant]
     Dosage: chemotherapy for the lung
  3. FLUOXETINE [Concomitant]
  4. SINGULAIR [Concomitant]
  5. SENNA [Concomitant]
  6. LYRICA [Concomitant]
  7. COLACE [Concomitant]
  8. LEVETIRACETAM [Concomitant]
  9. NEXIUM [Concomitant]
  10. LORATADINE [Concomitant]
  11. THERAPEUTIC RADIOPHARMACEUTICAL (UNSPECIFIED) [Concomitant]
     Dosage: external
  12. THERAPEUTIC RADIOPHARMACEUTICAL (UNSPECIFIED) [Concomitant]
  13. ROPINIROLE [Concomitant]
  14. MK-0130 [Concomitant]
  15. ALBUTEROL - USP (WARRICK) [Concomitant]
  16. DECADRON TABLETS [Concomitant]
     Route: 048

REACTIONS (2)
  - Dyspnoea exertional [Unknown]
  - Pulmonary embolism [Unknown]
